FAERS Safety Report 4375217-5 (Version None)
Quarter: 2004Q2

REPORT INFORMATION
  Report Type: 
  Country: None (occurrence: None)
  Receive Date: 20040610
  Receipt Date: 20040602
  Transmission Date: 20050107
  Serious: Yes (Other)
  Sender: FDA-Public Use
  Company Number: PHFR2004GB02316

PATIENT
  Age: 41 Year
  Sex: Female

DRUGS (1)
  1. BACLOFEN [Suspect]
     Indication: MUSCLE SPASTICITY
     Dosage: 5 MG, TID
     Route: 048
     Dates: start: 20040419, end: 20040422

REACTIONS (1)
  - SWOLLEN TONGUE [None]
